FAERS Safety Report 8404358 (Version 2)
Quarter: 2012Q4

REPORT INFORMATION
  Report Type: 
  Country: US (occurrence: US)
  Receive Date: 20120214
  Receipt Date: 20121017
  Transmission Date: 20130627
  Serious: Yes (Other)
  Sender: FDA-Public Use
  Company Number: US-PFIZER INC-2012034393

PATIENT
  Sex: Female

DRUGS (1)
  1. REVATIO [Suspect]
     Dosage: UNK
     Dates: start: 201201

REACTIONS (2)
  - Blood pressure increased [Unknown]
  - Heart rate increased [Unknown]
